FAERS Safety Report 4553816-5 (Version None)
Quarter: 2004Q4

REPORT INFORMATION
  Report Type: 
  Country: None (occurrence: None)
  Receive Date: 20041227
  Receipt Date: 20041029
  Transmission Date: 20050328
  Serious: No
  Sender: FDA-Public Use
  Company Number: 04P-163-0279393-00

PATIENT
  Age: 78 Year
  Sex: Male
  Weight: 77.1115 kg

DRUGS (9)
  1. HUMIRA [Suspect]
     Indication: RHEUMATOID ARTHRITIS
     Dosage: 40 MG, 1 IN 2 WK, SUBCUTANEOUS
     Route: 058
     Dates: start: 20040428
  2. LORAZEPAM [Concomitant]
  3. PREDNISONE [Concomitant]
  4. DICLOFENAC [Concomitant]
  5. GLUCOSAMINE W/CHONDROITIN SULFATES [Concomitant]
  6. OXYGEN [Concomitant]
  7. PRAZOSIN HCL [Concomitant]
  8. HYDROCODONE [Concomitant]
  9. CALCIUM WITH VITAMIN D [Concomitant]

REACTIONS (2)
  - HEADACHE [None]
  - INJECTION SITE BURNING [None]
